FAERS Safety Report 6030859-6 (Version None)
Quarter: 2009Q1

REPORT INFORMATION
  Report Type: 
  Country: None (occurrence: None)
  Receive Date: 20090106
  Receipt Date: 20081223
  Transmission Date: 20090719
  Serious: Yes (Other)
  Sender: FDA-Public Use
  Company Number: 2008SP026011

PATIENT
  Age: 48 Year
  Sex: Female

DRUGS (2)
  1. RIBAVIRIN [Suspect]
     Indication: HEPATITIS C
     Dosage: PO
     Route: 048
     Dates: end: 20060101
  2. PEG INTERFERON (INTEFERONS) [Suspect]
     Indication: HEPATITIS C
     Dates: end: 20060101

REACTIONS (2)
  - AGITATION [None]
  - PORPHYRIA NON-ACUTE [None]
